FAERS Safety Report 15183005 (Version 1)
Quarter: 2018Q3

REPORT INFORMATION
  Report Type: Spontaneous
  Country: US (occurrence: US)
  Receive Date: 20180625
  Receipt Date: 20180625
  Transmission Date: 20181010
  Serious: Yes (Other)
  Sender: FDA-Public Use
  Company Number: None

PATIENT
  Age: 95 Year
  Sex: Female
  Weight: 44.91 kg

DRUGS (6)
  1. METHODONE HCI 5MG [Suspect]
     Active Substance: METHADONE HYDROCHLORIDE
     Indication: AGITATION
     Route: 048
     Dates: start: 20180611, end: 20180614
  2. METHONDONE HCI 10MG/ML [Suspect]
     Active Substance: METHADONE HYDROCHLORIDE
     Indication: AGITATION
  3. METHODONE HCI 5MG [Suspect]
     Active Substance: METHADONE HYDROCHLORIDE
     Indication: AGITATION
     Route: 048
  4. METHODONE HCI 5MG [Suspect]
     Active Substance: METHADONE HYDROCHLORIDE
     Indication: BACK PAIN
     Route: 048
     Dates: start: 20180611, end: 20180614
  5. METHODONE HCI 5MG [Suspect]
     Active Substance: METHADONE HYDROCHLORIDE
     Indication: BACK PAIN
     Route: 048
  6. METHONDONE HCI 10MG/ML [Suspect]
     Active Substance: METHADONE HYDROCHLORIDE
     Indication: BACK PAIN
     Route: 048
     Dates: start: 20180615, end: 20180619

REACTIONS (3)
  - Agitation [None]
  - Emotional distress [None]
  - Anxiety [None]

NARRATIVE: CASE EVENT DATE: 20180618
